FAERS Safety Report 26133496 (Version 1)
Quarter: 2025Q4

REPORT INFORMATION
  Report Type: Report from Study
  Country: US (occurrence: US)
  Receive Date: 20251209
  Receipt Date: 20251209
  Transmission Date: 20260118
  Serious: Yes (Other)
  Sender: BIOCODEX
  Company Number: US-BIOCODEX2-2025001458

PATIENT
  Age: 7 Year
  Sex: Female
  Weight: 22.8 kg

DRUGS (10)
  1. DIACOMIT [Suspect]
     Active Substance: STIRIPENTOL
     Indication: Lennox-Gastaut syndrome
     Dosage: TAKE 250 MG BY MOUTH ONCE DAILY AT BEDTIME / FIRST DOSE: 250 MG ?(ONE OF THE 250 MG POWDER FOR SUSPENSION PACKETS DISSOLVED IN 5 ML OF WATER)
     Dates: start: 20250916
  2. DIACOMIT [Suspect]
     Active Substance: STIRIPENTOL
  3. DIAZEPAM [Concomitant]
     Active Substance: DIAZEPAM
     Indication: Product used for unknown indication
     Dosage: 3 MG, NIGHTLY
  4. DIAZEPAM [Concomitant]
     Active Substance: DIAZEPAM
     Route: 065
  5. EPIDIOLEX [Concomitant]
     Active Substance: CANNABIDIOL
     Indication: Product used for unknown indication
     Dosage: 2.5ML, THREE TIMES DAILY
  6. EPIDIOLEX [Concomitant]
     Active Substance: CANNABIDIOL
     Route: 065
  7. KEPPRA [Concomitant]
     Active Substance: LEVETIRACETAM
     Indication: Product used for unknown indication
     Dosage: 5.2ML, THREE TIMES DAILY
  8. KEPPRA [Concomitant]
     Active Substance: LEVETIRACETAM
     Route: 065
  9. VALTOCO [Concomitant]
     Active Substance: DIAZEPAM
     Indication: Product used for unknown indication
     Dosage: 10MG DOSE PRN (AS NEEDED)
  10. VALTOCO [Concomitant]
     Active Substance: DIAZEPAM
     Route: 065

REACTIONS (5)
  - Seizure [Unknown]
  - Adverse drug reaction [Unknown]
  - Off label use [Unknown]
  - Inappropriate schedule of product administration [Unknown]
  - Product preparation issue [Unknown]

NARRATIVE: CASE EVENT DATE: 20250916
